FAERS Safety Report 7745184-2 (Version None)
Quarter: 2011Q3

REPORT INFORMATION
  Report Type: 
  Country: None (occurrence: None)
  Receive Date: 20110907
  Receipt Date: 20110824
  Transmission Date: 20111222
  Serious: Yes (Hospitalization, Other)
  Sender: FDA-Public Use
  Company Number: 1022147

PATIENT
  Age: 47 Year
  Sex: Male
  Weight: 130.9 kg

DRUGS (7)
  1. ZOFRAN [Concomitant]
  2. RITUXAN [Suspect]
     Indication: CHRONIC LYMPHOCYTIC LEUKAEMIA
     Dosage: 375 MG/M2 ON WEEKS 1,5,9,13,17,21; WEEK 1, 3 DAYS/WEEK; WEEKS 5-21, 1 DAY/WEEK
     Dates: start: 20110411
  3. SANCUSO [Concomitant]
  4. CYTOXAN [Suspect]
     Indication: CHRONIC LYMPHOCYTIC LEUKAEMIA
     Dosage: 600 MG/M2, DAY 1 OF WEEKS 1,5,9,13,17,21,
     Dates: start: 20110411
  5. DECADRON [Concomitant]
  6. BENADRYL [Concomitant]
  7. NIPENT [Suspect]
     Indication: CHRONIC LYMPHOCYTIC LEUKAEMIA
     Dosage: 4 MG/M2, DAY 1 OF WEEKS 1,5,9,13,17,21,
     Dates: start: 20110411

REACTIONS (4)
  - DEHYDRATION [None]
  - RENAL FAILURE ACUTE [None]
  - VOMITING [None]
  - NAUSEA [None]
